FAERS Safety Report 15996916 (Version 1)
Quarter: 2019Q1

REPORT INFORMATION
  Report Type: Spontaneous
  Country: DE (occurrence: DE)
  Receive Date: 20190222
  Receipt Date: 20190222
  Transmission Date: 20190418
  Serious: Yes (Death, Hospitalization, Disabling, Other)
  Sender: FDA-Public Use
  Company Number: DE-SA-2019SA046691

PATIENT
  Age: 76 Year
  Sex: Female
  Weight: 65 kg

DRUGS (32)
  1. OXALIPLATIN. [Suspect]
     Active Substance: OXALIPLATIN
     Indication: RECTAL CANCER METASTATIC
     Route: 065
     Dates: start: 20131028, end: 20131028
  2. FLUOROURACIL. [Suspect]
     Active Substance: FLUOROURACIL
     Dosage: DAILY DOSE: 3908 MG MILLGRAM(S) EVERY 2 WEEKS
     Route: 040
     Dates: start: 20130912, end: 20131128
  3. FLUOROURACIL. [Suspect]
     Active Substance: FLUOROURACIL
     Dosage: DAILY DOSE: 600 MG MILLGRAM(S) EVERY 2 WEEKS
     Route: 040
     Dates: start: 20140109, end: 20140109
  4. FLUOROURACIL. [Suspect]
     Active Substance: FLUOROURACIL
     Dosage: 738 UNK
     Route: 040
     Dates: start: 20140107, end: 20140108
  5. FLUOROURACIL. [Suspect]
     Active Substance: FLUOROURACIL
     Dosage: DURATION OF 24 H
     Route: 041
     Dates: start: 20130912, end: 20130912
  6. NIFEDIPINE. [Concomitant]
     Active Substance: NIFEDIPINE
     Indication: HYPERTENSION
     Dosage: DOSE: 5-10 MG, FORM: 10 MG, 20 MG
     Route: 048
     Dates: start: 1993
  7. FLUOROURACIL. [Suspect]
     Active Substance: FLUOROURACIL
     Dosage: 738 UNK
     Route: 040
     Dates: start: 20140121, end: 20140123
  8. FLUOROURACIL. [Suspect]
     Active Substance: FLUOROURACIL
     Dosage: 400 UNK
     Route: 041
     Dates: start: 20140108, end: 20140108
  9. FLUOROURACIL. [Suspect]
     Active Substance: FLUOROURACIL
     Dosage: 492 UNK
     Route: 041
     Dates: start: 20140121, end: 20140122
  10. IRINOTECAN [Suspect]
     Active Substance: IRINOTECAN
     Indication: RECTAL CANCER METASTATIC
     Dosage: DAILY DOSE: 221 MG MILLGRAM(S) EVERY 2 WEEKS
     Route: 042
     Dates: start: 20140107, end: 20140121
  11. FLUOROURACIL. [Suspect]
     Active Substance: FLUOROURACIL
     Dosage: DAILY DOSE: 492 MG MILLGRAM(S) EVERY 2 WEEKS
     Route: 041
     Dates: start: 20131210, end: 20140122
  12. FOLINIC ACID [Suspect]
     Active Substance: LEUCOVORIN
     Indication: RECTAL CANCER METASTATIC
     Dosage: DAILY DOSE: 200 MG MILLGRAM(S) EVERY 2 WEEKS
     Route: 042
     Dates: start: 20130912, end: 20131028
  13. FLUOROURACIL. [Suspect]
     Active Substance: FLUOROURACIL
     Indication: RECTAL CANCER METASTATIC
     Dosage: 651 MG, QOW
     Route: 041
     Dates: start: 20130912, end: 20131126
  14. FLUOROURACIL. [Suspect]
     Active Substance: FLUOROURACIL
     Dosage: DAILY DOSE: 2950 MG MILLGRAM(S) EVERY 2 WEEKS
     Route: 040
     Dates: start: 20131210, end: 20131212
  15. BEVACIZUMAB. [Suspect]
     Active Substance: BEVACIZUMAB
     Indication: RECTAL CANCER METASTATIC
     Dosage: 5 MG/KG 4 CYCLES IN TOTAL, LAST DOSE PRIOR TO SAE: 28/OCT/2013
     Route: 042
     Dates: start: 20130912, end: 20130912
  16. URACID [METHIONINE] [Concomitant]
     Dosage: DAILY DOSE: 200 MG MILLGRAM(S) EVERY DAYS
     Route: 065
     Dates: start: 20140113
  17. CETUXIMAB. [Concomitant]
     Active Substance: CETUXIMAB
     Dosage: DAILY DOSE: 400 MG MILLGRAM(S) EVERY TOTAL
     Route: 065
     Dates: start: 20131210, end: 20131210
  18. DEXAMETHASON ACIS [DEXAMETHASONE] [Concomitant]
     Indication: VOMITING
     Dosage: DAILY DOSE: 12 MG MILLGRAM(S) EVERY CYCLICAL
     Route: 048
     Dates: start: 20130912, end: 20131028
  19. FOLINIC ACID [Suspect]
     Active Substance: LEUCOVORIN
     Dosage: DAILY DOSE: 570 MG MILLGRAM(S) EVERY 2 WEEKS
     Route: 042
     Dates: start: 20130912, end: 20130912
  20. CAPTOPRIL. [Concomitant]
     Active Substance: CAPTOPRIL
     Indication: HYPERTENSION
     Dosage: DAILY DOSE: 100 MG MILLGRAM(S) EVERY DAYS
     Route: 048
     Dates: start: 1993
  21. FLUOROURACIL. [Suspect]
     Active Substance: FLUOROURACIL
     Dosage: 492 MG
     Route: 041
     Dates: start: 20131210, end: 20140107
  22. FLUOROURACIL. [Suspect]
     Active Substance: FLUOROURACIL
     Dosage: 400 MG
     Route: 040
     Dates: start: 20130912, end: 20131028
  23. EUTHYROX [Concomitant]
     Active Substance: LEVOTHYROXINE SODIUM
     Indication: HYPOTHYROIDISM
     Dosage: DAILY DOSE: 100 ?G MICROGRAM(S) EVERY DAYS
     Route: 065
     Dates: start: 1980
  24. FLUOROURACIL. [Suspect]
     Active Substance: FLUOROURACIL
     Dosage: DURATION OF 24 H
     Route: 041
     Dates: start: 20131029, end: 20131029
  25. BEVACIZUMAB. [Suspect]
     Active Substance: BEVACIZUMAB
     Dosage: 325 UNK
     Route: 042
     Dates: start: 20131112, end: 20131112
  26. FOLINIC ACID [Suspect]
     Active Substance: LEUCOVORIN
     Dosage: 246 UNK
     Route: 042
     Dates: start: 20140107, end: 20140108
  27. DEXAMETHASON ACIS [DEXAMETHASONE] [Concomitant]
     Dosage: DAILY DOSE: 12 MG MILLGRAM(S) EVERY CYCLICAL
     Route: 048
     Dates: start: 20131028, end: 20131028
  28. KEVATRIL [Concomitant]
     Active Substance: GRANISETRON HYDROCHLORIDE
     Dosage: DAILY DOSE: 3 MG MILLGRAM(S) EVERY CYCLICAL
     Dates: start: 20131028, end: 20131028
  29. FLUOROURACIL. [Suspect]
     Active Substance: FLUOROURACIL
     Dosage: DAILY DOSE: 600 MG MILLGRAM(S) EVERY 2 WEEKS
     Route: 040
     Dates: start: 20140108, end: 20140109
  30. FOLINIC ACID [Suspect]
     Active Substance: LEUCOVORIN
     Dosage: DAILY DOSE: 326 MG MILLGRAM(S) EVERY 2 WEEKS
     Route: 042
     Dates: start: 20130913, end: 20131126
  31. FOLINIC ACID [Suspect]
     Active Substance: LEUCOVORIN
     Dosage: DAILY DOSE: 246 MG MILLGRAM(S) EVERY 2 WEEKS
     Route: 042
     Dates: start: 20131210, end: 20140121
  32. KEVATRIL [Concomitant]
     Active Substance: GRANISETRON HYDROCHLORIDE
     Indication: VOMITING
     Dosage: DAILY DOSE: 3 MG MILLGRAM(S) EVERY CYCLICAL
     Route: 042
     Dates: start: 20130912, end: 20130912

REACTIONS (5)
  - Musculoskeletal pain [Recovered/Resolved]
  - Deep vein thrombosis [Recovering/Resolving]
  - Malignant neoplasm progression [Fatal]
  - Hydronephrosis [Recovered/Resolved]
  - Abdominal pain [Recovered/Resolved]

NARRATIVE: CASE EVENT DATE: 20131112
